FAERS Safety Report 12330012 (Version 4)
Quarter: 2016Q2

REPORT INFORMATION
  Report Type: Spontaneous
  Country: GB (occurrence: GB)
  Receive Date: 20160504
  Receipt Date: 20160624
  Transmission Date: 20160815
  Serious: Yes (Other)
  Sender: FDA-Public Use
  Company Number: GB-AUROBINDO-AUR-APL-2016-05383

PATIENT
  Age: 52 Year
  Sex: Female

DRUGS (3)
  1. MIRTAZAPINE FILM-COATED TABLETS 15MG [Suspect]
     Active Substance: MIRTAZAPINE
     Dosage: 30 MG, DAILY
     Dates: start: 201512, end: 20160128
  2. MIRTAZAPINE FILM-COATED TABLETS 15MG [Suspect]
     Active Substance: MIRTAZAPINE
     Indication: DEPRESSION
     Dosage: 15 MG, DAILY
     Route: 048
     Dates: start: 20151126, end: 201512
  3. FEMOSTON CONTI [Concomitant]
     Active Substance: DYDROGESTERONE\ESTRADIOL
     Indication: HORMONE REPLACEMENT THERAPY
     Route: 065

REACTIONS (3)
  - Sedation [Recovered/Resolved]
  - Alanine aminotransferase increased [Not Recovered/Not Resolved]
  - Gamma-glutamyltransferase increased [Not Recovered/Not Resolved]

NARRATIVE: CASE EVENT DATE: 201512
